FAERS Safety Report 17534931 (Version 15)
Quarter: 2023Q2

REPORT INFORMATION
  Report Type: Report from Study
  Country: US (occurrence: US)
  Receive Date: 20200312
  Receipt Date: 20230620
  Transmission Date: 20230722
  Serious: Yes (Other)
  Sender: FDA-Public Use
  Company Number: US-AKCEA THERAPEUTICS-2019IS001807

PATIENT

DRUGS (4)
  1. TEGSEDI [Suspect]
     Active Substance: INOTERSEN SODIUM
     Indication: Hereditary neuropathic amyloidosis
     Dosage: 284 MG, QW
     Route: 058
     Dates: start: 20191126, end: 20221216
  2. TEGSEDI [Suspect]
     Active Substance: INOTERSEN SODIUM
     Dosage: 284 MG, QW
     Route: 058
     Dates: start: 20191126, end: 20191220
  3. TEGSEDI [Suspect]
     Active Substance: INOTERSEN SODIUM
     Dosage: 284 MG, QOW
     Route: 058
  4. TEGSEDI [Suspect]
     Active Substance: INOTERSEN SODIUM
     Dosage: 284 MG, QW
     Route: 058

REACTIONS (35)
  - Sarcoidosis [Unknown]
  - Central nervous system haemorrhage [Unknown]
  - Road traffic accident [Unknown]
  - Head injury [Unknown]
  - Urine abnormality [Not Recovered/Not Resolved]
  - Lymphadenopathy [Unknown]
  - Abdominal discomfort [Unknown]
  - Product dispensing issue [Unknown]
  - Urinary casts [Unknown]
  - Creatinine urine abnormal [Not Recovered/Not Resolved]
  - Urine ketone body present [Not Recovered/Not Resolved]
  - Swelling [Unknown]
  - Fungal test positive [Unknown]
  - Specific gravity urine abnormal [Not Recovered/Not Resolved]
  - Urine leukocyte esterase positive [Unknown]
  - Pain [Unknown]
  - Laboratory test abnormal [Not Recovered/Not Resolved]
  - Memory impairment [Unknown]
  - Product monitoring error [Unknown]
  - Urinary occult blood positive [Unknown]
  - White blood cells urine positive [Unknown]
  - Urine protein/creatinine ratio increased [Unknown]
  - Cough [Unknown]
  - Erythema [Unknown]
  - Bacterial test positive [Not Recovered/Not Resolved]
  - Muscle twitching [Not Recovered/Not Resolved]
  - Flank pain [Recovered/Resolved]
  - Fatigue [Unknown]
  - Myalgia [Not Recovered/Not Resolved]
  - Blood creatinine increased [Not Recovered/Not Resolved]
  - Protein urine present [Unknown]
  - Injection site erythema [Recovered/Resolved]
  - Glomerular filtration rate decreased [Not Recovered/Not Resolved]
  - Creatinine urine increased [Unknown]
  - Urinary casts present [Unknown]

NARRATIVE: CASE EVENT DATE: 20190101
